FAERS Safety Report 8371977-7 (Version None)
Quarter: 2012Q2

REPORT INFORMATION
  Report Type: 
  Country: None (occurrence: None)
  Receive Date: 20120518
  Receipt Date: 20120502
  Transmission Date: 20120825
  Serious: Yes (Disabling, Other)
  Sender: FDA-Public Use
  Company Number: US-ROCHE-798619

PATIENT
  Sex: Male
  Weight: 112.6 kg

DRUGS (5)
  1. VELCADE [Suspect]
     Indication: PRODUCT USED FOR UNKNOWN INDICATION
  2. OFLOXACIN [Concomitant]
     Dosage: DRUG REPORTED AS: OFLOXACIN 0.3 % OPHTH
  3. PROPARACAINE HCL [Concomitant]
  4. LIDOCAINE [Concomitant]
     Dosage: DRUG REPORTED AS: LIDOCAINE 1% W/ EPI
  5. POVIDONE IODINE [Concomitant]
     Dosage: DRUG REPORTED AS: POVIDONE-IODINE 5%

REACTIONS (4)
  - MEDICATION ERROR [None]
  - BLINDNESS [None]
  - EYE INFLAMMATION [None]
  - EYE PAIN [None]
